FAERS Safety Report 25917774 (Version 2)
Quarter: 2025Q4

REPORT INFORMATION
  Report Type: Spontaneous
  Country: US (occurrence: US)
  Receive Date: 20251014
  Receipt Date: 20251212
  Transmission Date: 20260118
  Serious: No
  Sender: CIPLA
  Company Number: US-CIPLA LTD.-2025US12497

PATIENT

DRUGS (4)
  1. ALBUTEROL [Suspect]
     Active Substance: ALBUTEROL
     Indication: Bronchitis chronic
     Dosage: 180 MICROGRAM (2 PUFFS), PRN (EVERY 4 HOURS AS NEEDED) AND IN JUL-2025 THE PATIENT STARTED REUSING T
     Dates: start: 202408
  2. ALBUTEROL [Suspect]
     Active Substance: ALBUTEROL
     Indication: Seasonal allergy
     Dosage: 180 MICROGRAM (2 PUFFS), PRN (EVERY 4 HOURS AS NEEDED)
     Dates: start: 2025
  3. ALBUTEROL [Suspect]
     Active Substance: ALBUTEROL
     Indication: Asthma
  4. WIXELA INHUB [Concomitant]
     Active Substance: FLUTICASONE PROPIONATE\SALMETEROL XINAFOATE
     Indication: Product used for unknown indication
     Dosage: 1 DOSAGE FORM (1-2 TIMES A DAY)
     Route: 065

REACTIONS (6)
  - Drug dose omission by device [Unknown]
  - Product knowledge deficit [Unknown]
  - Device delivery system issue [Unknown]
  - Product packaging quantity issue [Unknown]
  - Expired product administered [Unknown]
  - Device mechanical issue [Unknown]

NARRATIVE: CASE EVENT DATE: 20250801
